FAERS Safety Report 24306760 (Version 1)
Quarter: 2024Q3

REPORT INFORMATION
  Report Type: Report from Study
  Country: IN (occurrence: IN)
  Receive Date: 20240911
  Receipt Date: 20240911
  Transmission Date: 20241016
  Serious: Yes (Hospitalization, Other)
  Sender: ASTELLAS
  Company Number: IN-ASTELLAS-2024-AER-004713

PATIENT
  Age: 33 Year
  Sex: Male

DRUGS (2)
  1. TACROLIMUS [Suspect]
     Active Substance: TACROLIMUS
     Indication: Renal transplant
     Route: 065
  2. MYCOPHENOLATE MOFETIL [Concomitant]
     Active Substance: MYCOPHENOLATE MOFETIL
     Indication: Renal transplant
     Route: 065

REACTIONS (7)
  - Urinary tract infection [Recovered/Resolved]
  - Klebsiella urinary tract infection [Recovered/Resolved]
  - Typhoid fever [Recovered/Resolved]
  - Klebsiella infection [Recovered/Resolved]
  - Salmonella test positive [Recovered/Resolved]
  - Salmonella test positive [Recovered/Resolved]
  - Pathogen resistance [Recovered/Resolved]
